FAERS Safety Report 16370484 (Version 1)
Quarter: 2019Q2

REPORT INFORMATION
  Report Type: Spontaneous
  Country: IT (occurrence: IT)
  Receive Date: 20190530
  Receipt Date: 20190530
  Transmission Date: 20190711
  Serious: Yes (Other)
  Sender: FDA-Public Use
  Company Number: IT-ACCORD-129937

PATIENT
  Age: 76 Year
  Sex: Male

DRUGS (1)
  1. MITOMYCIN. [Suspect]
     Active Substance: MITOMYCIN
     Indication: BLADDER CANCER
     Route: 043
     Dates: start: 20181204, end: 20190118

REACTIONS (3)
  - Proteinuria [Recovering/Resolving]
  - Off label use [Unknown]
  - Haemoglobin urine [Recovering/Resolving]

NARRATIVE: CASE EVENT DATE: 20190409
